FAERS Safety Report 4761006-6 (Version None)
Quarter: 2005Q3

REPORT INFORMATION
  Report Type: 
  Country: None (occurrence: None)
  Receive Date: 20050901
  Receipt Date: 20050825
  Transmission Date: 20060218
  Serious: Yes (Hospitalization, Other)
  Sender: FDA-Public Use
  Company Number: 2005043279

PATIENT
  Age: 1 Day
  Sex: Female
  Weight: 3.1162 kg

DRUGS (1)
  1. NORVASC [Suspect]
     Indication: ILL-DEFINED DISORDER
     Dosage: PLACENTAL
     Route: 064

REACTIONS (10)
  - ASTHENIA [None]
  - BLOOD PRESSURE DECREASED [None]
  - CAESAREAN SECTION [None]
  - CARDIAC MURMUR [None]
  - DRUG EXPOSURE DURING PREGNANCY [None]
  - DRUG EXPOSURE VIA BREAST MILK [None]
  - NASOPHARYNGITIS [None]
  - NEONATAL DISORDER [None]
  - NEONATAL HYPOXIA [None]
  - PERSISTENT FOETAL CIRCULATION [None]
